FAERS Safety Report 8241429-3 (Version None)
Quarter: 2012Q1

REPORT INFORMATION
  Report Type: 
  Country: None (occurrence: None)
  Receive Date: 20120328
  Receipt Date: 20120326
  Transmission Date: 20120608
  Serious: Yes (Death)
  Sender: FDA-Public Use
  Company Number: US-ABBOTT-12P-163-0918842-00

PATIENT
  Sex: Male

DRUGS (1)
  1. ANDROGEL [Suspect]
     Indication: PRODUCT USED FOR UNKNOWN INDICATION
     Dosage: PUMP
     Dates: start: 20080101, end: 20110901

REACTIONS (3)
  - BLOOD TESTOSTERONE ABNORMAL [None]
  - MALAISE [None]
  - INCORRECT DOSE ADMINISTERED [None]
